FAERS Safety Report 5468386-7 (Version None)
Quarter: 2007Q3

REPORT INFORMATION
  Report Type: 
  Country: None (occurrence: None)
  Receive Date: 20070926
  Receipt Date: 20070920
  Transmission Date: 20080115
  Serious: Yes (Hospitalization, Other)
  Sender: FDA-Public Use
  Company Number: PHEH2007US09857

PATIENT
  Age: 72 Year
  Sex: Female

DRUGS (13)
  1. TEKTURNA [Suspect]
     Indication: HYPERTENSION
     Dosage: 150 MG, QD
     Route: 048
     Dates: start: 20070515, end: 20070606
  2. CYMBALTA [Concomitant]
     Indication: PAIN
     Dosage: 60 MG, QD
  3. LEVAQUIN [Concomitant]
     Indication: URINARY TRACT INFECTION
     Dosage: 250 MG, QD
     Dates: start: 20070501, end: 20070601
  4. SPIRONOLACTONE [Concomitant]
     Indication: LEFT VENTRICULAR DYSFUNCTION
     Dosage: 12.5 MG, QD
     Dates: start: 20070501, end: 20070712
  5. FERROUS SULFATE TAB [Concomitant]
     Indication: IRON DEFICIENCY ANAEMIA
     Dosage: 325 MG, QD
     Dates: start: 20070501
  6. HYDROXYCHLOROQUINE SULFATE [Concomitant]
     Indication: SJOGREN'S SYNDROME
     Dosage: 200 MG, BID
     Route: 048
     Dates: start: 20020101
  7. FOSAMAX ONCE WEEKLY [Concomitant]
     Indication: OSTEOPOROSIS
     Dosage: 70MG QWEEK
     Route: 048
  8. ZOLPIDEM TARTRATE [Concomitant]
     Indication: INSOMNIA
     Dosage: 10 MG, PRN
     Route: 048
     Dates: start: 20070501
  9. HYDROCODONE W/APAP [Concomitant]
     Indication: PAIN
     Dosage: 10/500MG PRN
     Route: 048
  10. APO-DOMPERIDONE [Concomitant]
     Dosage: 10 MG, QD
     Route: 048
  11. KETOCONAZOLE [Concomitant]
     Dosage: UNK, BID
     Route: 061
  12. LOPERAMIDE HCL [Concomitant]
     Indication: DIARRHOEA
     Dosage: 2 MG, PRN
     Route: 048
     Dates: start: 20050101
  13. CARVEDILOL [Concomitant]
     Indication: CARDIAC FAILURE CONGESTIVE
     Dates: start: 20070516

REACTIONS (3)
  - BLOOD SODIUM DECREASED [None]
  - HYPONATRAEMIA [None]
  - RENAL FAILURE [None]
